FAERS Safety Report 5040549-4 (Version None)
Quarter: 2006Q2

REPORT INFORMATION
  Report Type: 
  Country: None (occurrence: None)
  Receive Date: 20060630
  Receipt Date: 20060622
  Transmission Date: 20061013
  Serious: Yes (Hospitalization)
  Sender: FDA-Public Use
  Company Number: FR-ABBOTT-06P-056-0336698-00

PATIENT
  Age: 13 Month
  Sex: Female
  Weight: 9 kg

DRUGS (2)
  1. MICROPAKINE GRANULE [Suspect]
     Indication: ACCIDENTAL OVERDOSE
     Route: 048
     Dates: start: 20060506, end: 20060506
  2. MICROPAKINE GRANULE [Suspect]
     Indication: EPILEPSY
     Route: 048
     Dates: end: 20060506

REACTIONS (3)
  - ACCIDENTAL OVERDOSE [None]
  - DEPRESSED LEVEL OF CONSCIOUSNESS [None]
  - FEELING ABNORMAL [None]
